FAERS Safety Report 10866907 (Version 1)
Quarter: 2015Q1

REPORT INFORMATION
  Report Type: Spontaneous
  Country: US (occurrence: None)
  Receive Date: 20150220
  Receipt Date: 20150220
  Transmission Date: 20150721
  Serious: Yes (Hospitalization)
  Sender: FDA-Public Use
  Company Number: None

PATIENT
  Age: 32 Year
  Sex: Male
  Weight: 127.01 kg

DRUGS (24)
  1. ROBITUSSIN DM [Concomitant]
     Active Substance: DEXTROMETHORPHAN HYDROBROMIDE\GUAIFENESIN
  2. DIPHENHYDRAMINE [Concomitant]
     Active Substance: DIPHENHYDRAMINE
  3. BENZTROPINE [Concomitant]
     Active Substance: BENZTROPINE
  4. FLUPHENAZINE [Concomitant]
     Active Substance: FLUPHENAZINE
  5. SIMVASTATIN. [Concomitant]
     Active Substance: SIMVASTATIN
  6. CLOZAPINE. [Suspect]
     Active Substance: CLOZAPINE
     Indication: PSYCHOTIC DISORDER
     Dosage: 25 MG QAM/50MG QHS
     Route: 048
     Dates: start: 20150123, end: 20150130
  7. ATENOLOL. [Concomitant]
     Active Substance: ATENOLOL
  8. MAALOX ANTACID [Concomitant]
     Active Substance: ALUMINUM HYDROXIDE\DIMETHICONE\MAGNESIUM HYDROXIDE
  9. HYDROXYZINE [Concomitant]
     Active Substance: HYDROXYZINE\HYDROXYZINE HYDROCHLORIDE
  10. SULINDAC. [Concomitant]
     Active Substance: SULINDAC
  11. MILK OF MAGNESIA [Concomitant]
     Active Substance: MAGNESIUM HYDROXIDE
  12. ABILIFY [Concomitant]
     Active Substance: ARIPIPRAZOLE
  13. OXYBUTYNIN [Concomitant]
     Active Substance: OXYBUTYNIN
  14. OMEPRAZOLE. [Concomitant]
     Active Substance: OMEPRAZOLE
  15. TYLENOL [Concomitant]
     Active Substance: ACETAMINOPHEN
  16. TRAZODONE [Concomitant]
     Active Substance: TRAZODONE HYDROCHLORIDE
  17. LITHIUM [Concomitant]
     Active Substance: LITHIUM CARBONATE
  18. METFORMIN [Concomitant]
     Active Substance: METFORMIN HYDROCHLORIDE
  19. GABAPENTIN. [Concomitant]
     Active Substance: GABAPENTIN
  20. CLONIDINE. [Concomitant]
     Active Substance: CLONIDINE
  21. CALCIUM 500 + VIT D [Concomitant]
  22. TOPIRAMATE. [Concomitant]
     Active Substance: TOPIRAMATE
  23. CEPACOL [Concomitant]
     Active Substance: BENZOCAINE
  24. VITAMIN D2 [Concomitant]
     Active Substance: ERGOCALCIFEROL

REACTIONS (2)
  - Acute respiratory failure [None]
  - Myocarditis [None]

NARRATIVE: CASE EVENT DATE: 20150128
